FAERS Safety Report 14892918 (Version 2)
Quarter: 2018Q2

REPORT INFORMATION
  Report Type: Spontaneous
  Country: PT (occurrence: PT)
  Receive Date: 20180514
  Receipt Date: 20180629
  Transmission Date: 20180711
  Serious: Yes (Other)
  Sender: FDA-Public Use
  Company Number: PT-PFIZER INC-2018191804

PATIENT
  Age: 73 Year
  Sex: Female
  Weight: 63 kg

DRUGS (6)
  1. OMEPRAZOLE. [Concomitant]
     Active Substance: OMEPRAZOLE
     Dosage: 1 DF, 1X/DAY (FASTING)
     Route: 065
  2. LISINOPRIL. [Concomitant]
     Active Substance: LISINOPRIL
     Dosage: 10 MG, 1X/DAY
     Route: 065
  3. LOPID [Suspect]
     Active Substance: GEMFIBROZIL
     Dosage: 300 MG, 1X/DAY
     Route: 065
  4. METFORMIN [Concomitant]
     Active Substance: METFORMIN HYDROCHLORIDE
     Dosage: 1 DF, 2X/DAY (100MG+50MG AT BREAKFAST AND DINNER)
     Route: 065
  5. CRESTOR [Concomitant]
     Active Substance: ROSUVASTATIN CALCIUM
     Dosage: 10 MG, 1X/DAY (DINNER)
     Route: 065
  6. PACLITAXEL AUROVITAS [Interacting]
     Active Substance: PACLITAXEL
     Indication: ADENOCARCINOMA
     Dosage: 200 MG/M2, 1X/DAY
     Route: 042
     Dates: start: 20180125

REACTIONS (4)
  - Dyspnoea [Recovered/Resolved]
  - Drug interaction [Unknown]
  - Erythema [Recovered/Resolved]
  - Cough [Recovered/Resolved]

NARRATIVE: CASE EVENT DATE: 20180215
